FAERS Safety Report 8618638-4 (Version None)
Quarter: 2012Q3

REPORT INFORMATION
  Report Type: 
  Country: None (occurrence: None)
  Receive Date: 20120814
  Receipt Date: 20120814
  Transmission Date: 20120928
  Serious: Yes (Other)
  Sender: FDA-Public Use
  Company Number: None

PATIENT
  Age: 34 Year
  Sex: Male
  Weight: 80.2867 kg

DRUGS (1)
  1. DEXTROAMPHETAMINE [Suspect]
     Indication: ATTENTION DEFICIT/HYPERACTIVITY DISORDER
     Dosage: 20MG 3 TIMES DAILY PO
     Route: 048
     Dates: start: 20120126, end: 20120808

REACTIONS (4)
  - MUSCLE SPASMS [None]
  - ANXIETY [None]
  - PARANOIA [None]
  - FEELING ABNORMAL [None]
